FAERS Safety Report 24061294 (Version 2)
Quarter: 2024Q3

REPORT INFORMATION
  Report Type: Spontaneous
  Country: SE (occurrence: SE)
  Receive Date: 20240708
  Receipt Date: 20240715
  Transmission Date: 20241017
  Serious: Yes (Congenital Anomaly)
  Sender: MYLAN
  Company Number: SE-Orion Corporation ORION PHARMA-FING2024-0001

PATIENT

DRUGS (1)
  1. FINGOLIMOD [Suspect]
     Active Substance: FINGOLIMOD
     Indication: Product used for unknown indication
     Dosage: EXPOSED WITHIN 3 MONTHS PRIOR TO CONCEPTION AND DURING PREGNANCY
     Route: 064

REACTIONS (2)
  - Congenital anomaly [Unknown]
  - Foetal exposure during pregnancy [Unknown]
